FAERS Safety Report 4273304-3 (Version None)
Quarter: 2004Q1

REPORT INFORMATION
  Report Type: 
  Country: None (occurrence: None)
  Receive Date: 20040114
  Receipt Date: 20040106
  Transmission Date: 20041129
  Serious: Yes (Hospitalization)
  Sender: FDA-Public Use
  Company Number: 200410006BYL

PATIENT
  Age: 53 Year
  Sex: Male

DRUGS (3)
  1. ASPIRIN [Suspect]
     Dosage: 100 MG , QD, ORAL
     Route: 048
     Dates: start: 20031224, end: 20031226
  2. DIOVAN [Suspect]
     Dosage: 40 MG, QD, ORAL
     Route: 048
     Dates: start: 20031224, end: 20031226
  3. FAMOTIDINE [Suspect]
     Dosage: 10 MG, QD, ORAL
     Route: 048
     Dates: start: 20031224, end: 20031226

REACTIONS (2)
  - CONDITION AGGRAVATED [None]
  - RENAL IMPAIRMENT [None]
